FAERS Safety Report 10895757 (Version 3)
Quarter: 2015Q3

REPORT INFORMATION
  Report Type: Spontaneous
  Country: GB (occurrence: GB)
  Receive Date: 20150307
  Receipt Date: 20150825
  Transmission Date: 20151125
  Serious: Yes (Other)
  Sender: FDA-Public Use
  Company Number: GB-ACCORD-028948

PATIENT
  Age: 71 Year
  Sex: Female

DRUGS (5)
  1. SANDOZ LTD OMEPRAZOLE [Suspect]
     Active Substance: OMEPRAZOLE
     Indication: PRODUCT USED FOR UNKNOWN INDICATION
     Dosage: STRENGTH: 10 MG CAPSULE; ONCE IN TWO DAYS
     Route: 065
  2. SANDOZ AMLODIPINE [Suspect]
     Active Substance: AMLODIPINE MALEATE
     Indication: PRODUCT USED FOR UNKNOWN INDICATION
     Dosage: UNK
     Route: 065
  3. NYSTATIN/NYSTATIN/LIPOSOME [Concomitant]
     Indication: BLOOD CHOLESTEROL INCREASED
     Route: 065
  4. METFORMIN [Concomitant]
     Active Substance: METFORMIN HYDROCHLORIDE
     Dosage: UNK
     Route: 065
  5. CLOPIDOGREL [Suspect]
     Active Substance: CLOPIDOGREL BISULFATE
     Indication: CEREBROVASCULAR ACCIDENT
     Dosage: 75 MG, QD
     Route: 048
     Dates: start: 201306

REACTIONS (11)
  - Feeling abnormal [Unknown]
  - Intercepted medication error [Unknown]
  - Dizziness [Not Recovered/Not Resolved]
  - Fear [Unknown]
  - Loss of consciousness [Unknown]
  - Diverticulitis [Unknown]
  - Cerebrovascular accident [Unknown]
  - Sleep disorder [Not Recovered/Not Resolved]
  - Insomnia [Not Recovered/Not Resolved]
  - Hyperchlorhydria [Unknown]
  - Malaise [Unknown]

NARRATIVE: CASE EVENT DATE: 2008
